FAERS Safety Report 14088610 (Version 1)
Quarter: 2017Q4

REPORT INFORMATION
  Report Type: Spontaneous
  Country: DE (occurrence: DE)
  Receive Date: 20171013
  Receipt Date: 20171013
  Transmission Date: 20180321
  Serious: Yes (Hospitalization, Other)
  Sender: FDA-Public Use
  Company Number: DE-009507513-1709DEU011644

PATIENT
  Age: 61 Year
  Sex: Male
  Weight: 108 kg

DRUGS (2)
  1. KEYTRUDA [Suspect]
     Active Substance: PEMBROLIZUMAB
     Dosage: 2 MG/KG BODY WEIGHT, 24 CYCLES
     Dates: start: 20160316, end: 20160406
  2. KEYTRUDA [Suspect]
     Active Substance: PEMBROLIZUMAB
     Indication: NEUROENDOCRINE CARCINOMA OF THE SKIN
     Dosage: 2 MG/KG BODY WEIGHT, EVERY 3 WEEKS, 24 CYCLES
     Dates: start: 20170102, end: 20170802

REACTIONS (29)
  - Pneumonitis [Recovering/Resolving]
  - Nausea [Unknown]
  - Metastases to central nervous system [Unknown]
  - Autoimmune hepatitis [Unknown]
  - Abdominal pain upper [Unknown]
  - Transfusion [Unknown]
  - Leukoencephalopathy [Unknown]
  - Pneumonia [Unknown]
  - Androgen deficiency [Unknown]
  - Weight decreased [Unknown]
  - Condition aggravated [Recovering/Resolving]
  - Transfusion [Unknown]
  - Dysphagia [Not Recovered/Not Resolved]
  - Autoimmune pancreatitis [Unknown]
  - Paresis cranial nerve [Unknown]
  - Weight decreased [Unknown]
  - Vomiting [Unknown]
  - Lymphocytic hypophysitis [Unknown]
  - Aspiration [Unknown]
  - Nausea [Unknown]
  - Bronchitis bacterial [Unknown]
  - Oesophageal disorder [Unknown]
  - Vomiting [Unknown]
  - Product use in unapproved indication [Unknown]
  - Neuritis cranial [Not Recovered/Not Resolved]
  - Condition aggravated [Unknown]
  - Pneumonitis [Recovering/Resolving]
  - Condition aggravated [Unknown]
  - Abdominal pain upper [Unknown]

NARRATIVE: CASE EVENT DATE: 20160316
